FAERS Safety Report 7805541-2 (Version None)
Quarter: 2011Q4

REPORT INFORMATION
  Report Type: 
  Country: None (occurrence: None)
  Receive Date: 20111010
  Receipt Date: 20111006
  Transmission Date: 20120403
  Serious: Yes (Death, Other)
  Sender: FDA-Public Use
  Company Number: DE-ABBOTT-09P-062-0585326-00

PATIENT
  Age: 58 Year
  Sex: Male

DRUGS (6)
  1. ADALIMUMAB [Suspect]
     Indication: FISTULA
     Route: 058
  2. AZATHIOPRINE [Suspect]
     Indication: PRODUCT USED FOR UNKNOWN INDICATION
  3. REMICADE [Suspect]
     Indication: FISTULA
     Dosage: INFUSION
  4. CYCLOPHOSPHAMIDE [Suspect]
     Indication: CHEMOTHERAPY
     Dosage: NOT REPORTED
  5. INFLIXIMAB [Suspect]
     Indication: PRODUCT USED FOR UNKNOWN INDICATION
     Dosage: 2 INFUSIONS
  6. ADALIMUMAB [Suspect]
     Indication: CROHN'S DISEASE

REACTIONS (2)
  - INFECTION [None]
  - HEPATOSPLENIC T-CELL LYMPHOMA [None]
